FAERS Safety Report 24696098 (Version 1)
Quarter: 2024Q4

REPORT INFORMATION
  Report Type: Spontaneous
  Country: JP (occurrence: JP)
  Receive Date: 20241204
  Receipt Date: 20241204
  Transmission Date: 20250115
  Serious: Yes (Other)
  Sender: ACCORD
  Company Number: JP-MLMSERVICE-20241121-PI260304-00249-5

PATIENT
  Age: 71 Year
  Sex: Male

DRUGS (11)
  1. FLUOROURACIL [Suspect]
     Active Substance: FLUOROURACIL
     Indication: Colorectal cancer metastatic
     Dosage: FOR 1ST CYCLE AND NEXT 10 CYCLES AT REDUCED DOSE
     Dates: start: 2022
  2. IRINOTECAN [Suspect]
     Active Substance: IRINOTECAN
     Indication: Colorectal cancer metastatic
     Dosage: 125 MG/M2, A 60-MIN INFUSION EVERY 2 WEEKS, FOR 1ST CYCLE AND NEXT 10 CYCLES AT REDUCED DOSE
     Dates: start: 2022
  3. OXALIPLATIN [Suspect]
     Active Substance: OXALIPLATIN
     Indication: Colorectal cancer metastatic
     Dosage: 85 MG/M2, A 120-MIN INFUSION EVERY 2 WEEKS, FOR 1ST CYCLE AND NEXT 7 CYCLES AT REDUCED DOSE
     Dates: start: 2022
  4. LEUCOVORIN [Suspect]
     Active Substance: LEUCOVORIN\LEUCOVORIN CALCIUM
     Indication: Colorectal cancer metastatic
     Dosage: 200 MG/M2, A 120-MIN INFUSION EVERY 2 WEEKS, FOR 1ST CYCLE AND NEXT 10 CYCLES AT REDUCED DOSE
     Dates: start: 2022
  5. IRINOTECAN [Suspect]
     Active Substance: IRINOTECAN
     Indication: Metastases to liver
     Dosage: 125 MG/M2, A 60-MIN INFUSION EVERY 2 WEEKS, FOR 1ST CYCLE AND NEXT 10 CYCLES AT REDUCED DOSE
     Dates: start: 2022
  6. IRINOTECAN [Suspect]
     Active Substance: IRINOTECAN
     Indication: Metastases to lung
     Dosage: 125 MG/M2, A 60-MIN INFUSION EVERY 2 WEEKS, FOR 1ST CYCLE AND NEXT 10 CYCLES AT REDUCED DOSE
     Dates: start: 2022
  7. LEUCOVORIN [Suspect]
     Active Substance: LEUCOVORIN\LEUCOVORIN CALCIUM
     Indication: Metastases to lung
     Dosage: 200 MG/M2, A 120-MIN INFUSION EVERY 2 WEEKS, FOR 1ST CYCLE AND NEXT 10 CYCLES AT REDUCED DOSE
     Dates: start: 2022
  8. FLUOROURACIL [Suspect]
     Active Substance: FLUOROURACIL
     Indication: Metastases to liver
     Dosage: FOR 1ST CYCLE AND NEXT 10 CYCLES AT REDUCED DOSE
     Dates: start: 2022
  9. FLUOROURACIL [Suspect]
     Active Substance: FLUOROURACIL
     Indication: Metastases to liver
     Dosage: FOR 1ST CYCLE AND NEXT 10 CYCLES AT REDUCED DOSE
     Dates: start: 2022
  10. OXALIPLATIN [Suspect]
     Active Substance: OXALIPLATIN
     Indication: Metastases to liver
     Dosage: 85 MG/M2, A 120-MIN INFUSION EVERY 2 WEEKS, FOR 1ST CYCLE AND NEXT 7 CYCLES AT REDUCED DOSE
     Dates: start: 2022
  11. LEUCOVORIN [Suspect]
     Active Substance: LEUCOVORIN\LEUCOVORIN CALCIUM
     Indication: Metastases to liver
     Dosage: 200 MG/M2, A 120-MIN INFUSION EVERY 2 WEEKS, FOR 1ST CYCLE AND NEXT 10 CYCLES AT REDUCED DOSE
     Dates: start: 2022

REACTIONS (1)
  - Neuropathy peripheral [Unknown]

NARRATIVE: CASE EVENT DATE: 20220101
